FAERS Safety Report 6017014-0 (Version None)
Quarter: 2008Q4

REPORT INFORMATION
  Report Type: 
  Country: None (occurrence: None)
  Receive Date: 20081223
  Receipt Date: 20081209
  Transmission Date: 20090506
  Serious: Yes (Other)
  Sender: FDA-Public Use
  Company Number: US-ROCHE-601745

PATIENT
  Age: 84 Year
  Sex: Female

DRUGS (2)
  1. XELODA [Suspect]
     Indication: MALIGNANT NEOPLASM OF AMPULLA OF VATER
     Route: 065
  2. COMPAZINE [Concomitant]

REACTIONS (1)
  - OPTIC NEUROPATHY [None]
